FAERS Safety Report 15180081 (Version 1)
Quarter: 2018Q3

REPORT INFORMATION
  Report Type: Spontaneous
  Country: US (occurrence: US)
  Receive Date: 20180723
  Receipt Date: 20180723
  Transmission Date: 20181010
  Serious: No
  Sender: FDA-Public Use
  Company Number: US-PFIZER INC-2018294116

PATIENT
  Age: 65 Year
  Sex: Female
  Weight: 38.56 kg

DRUGS (5)
  1. BREO ELLIPTA [Concomitant]
     Active Substance: FLUTICASONE FUROATE\VILANTEROL TRIFENATATE
     Indication: CHRONIC OBSTRUCTIVE PULMONARY DISEASE
     Dosage: [FLUTICASONE FUROATE 200MCG]/[VILANTEROL TRIFENATATE 20MCG], 1X/DAY
     Route: 048
  2. VENTOLIN HFA [Concomitant]
     Active Substance: ALBUTEROL SULFATE
     Indication: CHRONIC OBSTRUCTIVE PULMONARY DISEASE
     Dosage: 2 PUFFS INHALED, AS NEEDED
     Route: 048
  3. INCRUSE ELLIPTA [Concomitant]
     Active Substance: UMECLIDINIUM BROMIDE
     Indication: CHRONIC OBSTRUCTIVE PULMONARY DISEASE
     Dosage: 62.5 UG, 1X/DAY (62.5 MCG INHALED ONCE A DAY)
  4. VFEND [Suspect]
     Active Substance: VORICONAZOLE
     Indication: ASPERGILLUS INFECTION
     Dosage: 200 MG, TWICE A DAY
     Route: 048
     Dates: start: 20180501
  5. VFEND [Suspect]
     Active Substance: VORICONAZOLE
     Dosage: 100 MG, TWICE A DAY (1/2 TABLET BY MOUTH IN THE MORNING AND 1/2 TABLET AT NIGHT)
     Route: 048

REACTIONS (2)
  - Blister [Unknown]
  - Hallucination, visual [Recovered/Resolved]

NARRATIVE: CASE EVENT DATE: 201805
